FAERS Safety Report 8450387-8 (Version None)
Quarter: 2012Q2

REPORT INFORMATION
  Report Type: 
  Country: None (occurrence: None)
  Receive Date: 20120620
  Receipt Date: 20120615
  Transmission Date: 20120825
  Serious: Yes (Other)
  Sender: FDA-Public Use
  Company Number: US-PFIZER INC-2012145179

PATIENT
  Sex: Female
  Weight: 63.492 kg

DRUGS (3)
  1. VENLAFAXINE HCL [Suspect]
     Indication: DEPRESSION
     Dosage: UNK
     Dates: start: 20120101, end: 20120501
  2. OMEPRAZOLE [Concomitant]
     Indication: GASTROOESOPHAGEAL REFLUX DISEASE
     Dosage: 40 MG, DAILY
     Route: 048
  3. TRAMADOL [Concomitant]
     Indication: ARTHRITIS
     Dosage: AT 50MG UP TO 4 TIMES IN A DAY AS NEEDED

REACTIONS (5)
  - ACTIVITIES OF DAILY LIVING IMPAIRED [None]
  - HORMONE LEVEL ABNORMAL [None]
  - DRUG INEFFECTIVE [None]
  - THINKING ABNORMAL [None]
  - BEDRIDDEN [None]
